FAERS Safety Report 25646783 (Version 1)
Quarter: 2025Q3

REPORT INFORMATION
  Report Type: Spontaneous
  Country: US (occurrence: US)
  Receive Date: 20250805
  Receipt Date: 20250805
  Transmission Date: 20251021
  Serious: No
  Sender: ABBVIE
  Company Number: US-ABBVIE-6397790

PATIENT
  Age: 77 Year
  Sex: Female

DRUGS (2)
  1. BOTOX COSMETIC [Suspect]
     Active Substance: ONABOTULINUMTOXINA
     Indication: Skin wrinkling
     Route: 030
     Dates: start: 202507, end: 202507
  2. BOTOX COSMETIC [Suspect]
     Active Substance: ONABOTULINUMTOXINA
     Indication: Skin wrinkling
     Route: 065
     Dates: start: 2022, end: 2022

REACTIONS (3)
  - Dizziness [Not Recovered/Not Resolved]
  - Anxiety [Unknown]
  - Vertigo [Recovered/Resolved]

NARRATIVE: CASE EVENT DATE: 20250725
